FAERS Safety Report 21442691 (Version 1)
Quarter: 2022Q4

REPORT INFORMATION
  Report Type: Report from Study
  Country: NL (occurrence: NL)
  Receive Date: 20221012
  Receipt Date: 20221012
  Transmission Date: 20230112
  Serious: Yes (Other)
  Sender: FDA-Public Use
  Company Number: NL-SUN PHARMACEUTICAL INDUSTRIES LTD-2022R1-358408

PATIENT
  Sex: Female

DRUGS (2)
  1. NICARDIPINE [Suspect]
     Active Substance: NICARDIPINE
     Indication: Hypertension
     Dosage: UNK (1 MG/H)
     Route: 042
  2. BETAMETHASONE [Suspect]
     Active Substance: BETAMETHASONE
     Indication: Maternal therapy to enhance foetal lung maturity
     Dosage: UNK (12 MG, 24 H APART)
     Route: 030

REACTIONS (4)
  - Hypotension [Unknown]
  - Exposure during pregnancy [Unknown]
  - Foetal distress syndrome [Unknown]
  - Live birth [Unknown]
